FAERS Safety Report 9073484 (Version 1)
Quarter: 2013Q1

REPORT INFORMATION
  Report Type: Report from Study
  Country: US (occurrence: US)
  Receive Date: 20130129
  Receipt Date: 20130129
  Transmission Date: 20140127
  Serious: No
  Sender: FDA-Public Use
  Company Number: US-ABBOTT-12P-163-0936244-00

PATIENT
  Age: 33 None
  Sex: Female

DRUGS (5)
  1. HUMIRA 40 MG/0.8 ML PEN [Suspect]
     Indication: PSORIASIS
     Dates: start: 20120510, end: 20120510
  2. HUMIRA 40 MG/0.8 ML PEN [Suspect]
     Indication: PSORIATIC ARTHROPATHY
  3. GLUCOPHAGE [Concomitant]
     Indication: DIABETES MELLITUS
  4. UNKNOWN INHALERS [Concomitant]
     Indication: ASTHMA
  5. UNKNOWN ANTIHYPERTENSIVE [Concomitant]
     Indication: HYPERTENSION

REACTIONS (3)
  - Pruritus [Not Recovered/Not Resolved]
  - Malaise [Recovered/Resolved]
  - Hypersomnia [Recovered/Resolved]
